FAERS Safety Report 22022821 (Version 1)
Quarter: 2023Q1

REPORT INFORMATION
  Report Type: Spontaneous
  Country: CN (occurrence: CN)
  Receive Date: 20230222
  Receipt Date: 20230222
  Transmission Date: 20230418
  Serious: Yes (Other)
  Sender: FDA-Public Use
  Company Number: CN-BoehringerIngelheim-2023-BI-219354

PATIENT
  Age: 72 Year
  Sex: Male

DRUGS (12)
  1. NINTEDANIB [Suspect]
     Active Substance: NINTEDANIB
     Indication: Non-small cell lung cancer
     Route: 048
     Dates: start: 20210309
  2. NINTEDANIB [Suspect]
     Active Substance: NINTEDANIB
     Route: 048
     Dates: start: 202103
  3. ENOXAPARIN SODIUM [Concomitant]
     Active Substance: ENOXAPARIN SODIUM
     Indication: Pulmonary embolism
     Dates: start: 20210216
  4. OXYGEN [Concomitant]
     Active Substance: OXYGEN
     Indication: Product used for unknown indication
     Dosage: 8L/MIN
     Route: 055
     Dates: start: 20210216
  5. METHYLPREDNISOLONE SODIUM SUCCINATE [Concomitant]
     Active Substance: METHYLPREDNISOLONE SODIUM SUCCINATE
     Indication: Product used for unknown indication
     Dates: start: 20210216
  6. albumin-paclitaxel [Concomitant]
     Indication: Product used for unknown indication
     Dosage: ON DAY 1 AND DAY 8
     Route: 042
     Dates: start: 202012
  7. albumin-paclitaxel [Concomitant]
     Dosage: ON DAY 1 AND DAY 8
     Route: 042
     Dates: start: 202012
  8. CAMRELIZUMAB [Concomitant]
     Active Substance: CAMRELIZUMAB
     Indication: Product used for unknown indication
     Dosage: DAY 1
     Dates: start: 202012
  9. INFLIXIMAB [Concomitant]
     Active Substance: INFLIXIMAB
     Indication: Interstitial lung disease
  10. TIGECYCLINE [Concomitant]
     Active Substance: TIGECYCLINE
     Indication: Pneumonia
  11. MEROPENEM [Concomitant]
     Active Substance: MEROPENEM
     Indication: Pneumonia
  12. MICAFUNGIN [Concomitant]
     Active Substance: MICAFUNGIN
     Indication: Pneumonia

REACTIONS (2)
  - Malignant neoplasm progression [Recovered/Resolved]
  - General physical health deterioration [Unknown]

NARRATIVE: CASE EVENT DATE: 20211013
